FAERS Safety Report 9904642 (Version 2)
Quarter: 2014Q1

REPORT INFORMATION
  Report Type: Spontaneous
  Country: US (occurrence: US)
  Receive Date: 20140218
  Receipt Date: 20140304
  Transmission Date: 20141002
  Serious: Yes (Death, Other)
  Sender: FDA-Public Use
  Company Number: US-ASTELLAS-2014US001578

PATIENT
  Age: 70 Year
  Sex: Male

DRUGS (1)
  1. TARCEVA [Suspect]
     Indication: LUNG NEOPLASM MALIGNANT
     Dosage: 100 MG, UID/QD
     Route: 048
     Dates: start: 20131203, end: 20140207

REACTIONS (11)
  - Incorrect dose administered [Unknown]
  - Hypoxia [Unknown]
  - Large intestine perforation [Unknown]
  - Gastrointestinal haemorrhage [Unknown]
  - Sepsis [Unknown]
  - Diverticulitis [Unknown]
  - Dyspepsia [Unknown]
  - Abdominal distension [Unknown]
  - Abdominal discomfort [Unknown]
  - Respiratory failure [Fatal]
  - Emphysema [Fatal]
